FAERS Safety Report 5647545-4 (Version None)
Quarter: 2008Q1

REPORT INFORMATION
  Report Type: 
  Country: None (occurrence: None)
  Receive Date: 20080131
  Receipt Date: 20070927
  Transmission Date: 20080703
  Serious: No
  Sender: FDA-Public Use
  Company Number: 163-21880-07091587

PATIENT
  Age: 54 Year
  Sex: Male

DRUGS (6)
  1. REVLIMID [Suspect]
     Indication: MULTIPLE MYELOMA
     Dosage: 25 MG, 1 IN 1 D, ORAL
     Route: 048
     Dates: start: 20070831
  2. ZOMETA [Concomitant]
  3. HYDROMORPHONE HCL [Concomitant]
  4. VALIUM [Concomitant]
  5. DEXAMETHASONE TAB [Concomitant]
  6. BENADRYL [Concomitant]

REACTIONS (3)
  - PRURITUS [None]
  - RASH [None]
  - SWELLING FACE [None]
